FAERS Safety Report 7816633-6 (Version None)
Quarter: 2011Q4

REPORT INFORMATION
  Report Type: 
  Country: None (occurrence: None)
  Receive Date: 20111017
  Receipt Date: 20110928
  Transmission Date: 20120403
  Serious: Yes (Other)
  Sender: FDA-Public Use
  Company Number: US-PFIZER INC-2011246535

PATIENT

DRUGS (3)
  1. ZITHROMAX [Concomitant]
     Indication: BRONCHITIS
  2. FLAGYL [Suspect]
     Indication: CLOSTRIDIAL INFECTION
  3. KEFLEX [Concomitant]
     Indication: URINARY TRACT INFECTION

REACTIONS (10)
  - IRRITABILITY [None]
  - DRUG INEFFECTIVE [None]
  - URINARY TRACT INFECTION [None]
  - TREMOR [None]
  - ASTHENIA [None]
  - DIZZINESS [None]
  - CRYING [None]
  - BRONCHITIS [None]
  - MALAISE [None]
  - VISION BLURRED [None]
